FAERS Safety Report 12543493 (Version 2)
Quarter: 2016Q3

REPORT INFORMATION
  Report Type: Spontaneous
  Country: GB (occurrence: GB)
  Receive Date: 20160711
  Receipt Date: 20160720
  Transmission Date: 20161109
  Serious: Yes (Hospitalization, Other)
  Sender: FDA-Public Use
  Company Number: GB-PFIZER INC-2015230874

PATIENT
  Age: 57 Year

DRUGS (8)
  1. CYCLOPHOSPHAMIDE. [Concomitant]
     Active Substance: CYCLOPHOSPHAMIDE
  2. PERJETA [Suspect]
     Active Substance: PERTUZUMAB
     Indication: HER-2 POSITIVE BREAST CANCER
     Dosage: UNK
     Route: 065
  3. KADCYLA [Suspect]
     Active Substance: ADO-TRASTUZUMAB EMTANSINE
     Indication: HER-2 POSITIVE BREAST CANCER
     Dosage: UNK
     Route: 065
  4. EPIRUBICIN [Concomitant]
     Active Substance: EPIRUBICIN
  5. FLUOROURACIL. [Concomitant]
     Active Substance: FLUOROURACIL
  6. DOCETAXEL. [Suspect]
     Active Substance: DOCETAXEL
     Dosage: 75 MG/M2, UNK
  7. HERCEPTIN [Suspect]
     Active Substance: TRASTUZUMAB
     Indication: HER-2 POSITIVE BREAST CANCER
     Dosage: UNK
     Route: 065
  8. DOCETAXEL. [Suspect]
     Active Substance: DOCETAXEL
     Indication: HER-2 POSITIVE BREAST CANCER
     Dosage: 60 MG/M2, EVERY 5 DAYS

REACTIONS (6)
  - Varicella [Recovered/Resolved]
  - Lower respiratory tract infection [Recovered/Resolved]
  - HER-2 positive breast cancer [Unknown]
  - Disease progression [Unknown]
  - Neutropenic infection [Unknown]
  - Clostridium difficile infection [Recovered/Resolved]
